FAERS Safety Report 9378437 (Version 1)
Quarter: 2013Q3

REPORT INFORMATION
  Report Type: Spontaneous
  Country: FR (occurrence: FR)
  Receive Date: 20130701
  Receipt Date: 20130701
  Transmission Date: 20140515
  Serious: Yes (Other)
  Sender: FDA-Public Use
  Company Number: FR-JNJFOC-20130618560

PATIENT
  Sex: Male

DRUGS (1)
  1. NICORETTE GUM 2MG ICE MINT [Suspect]
     Indication: SMOKING CESSATION THERAPY
     Route: 002
     Dates: start: 2008

REACTIONS (2)
  - Nicotine dependence [Not Recovered/Not Resolved]
  - Intentional drug misuse [Unknown]
